FAERS Safety Report 12956093 (Version 1)
Quarter: 2016Q4

REPORT INFORMATION
  Report Type: Spontaneous
  Country: US (occurrence: US)
  Receive Date: 20161118
  Receipt Date: 20161118
  Transmission Date: 20170207
  Serious: No
  Sender: FDA-Public Use
  Company Number: US-JNJFOC-20161012738

PATIENT
  Age: 79 Year
  Sex: Female
  Weight: 66.23 kg

DRUGS (1)
  1. EXTRA STRENGTH TYLENOL CAPLETS [Suspect]
     Active Substance: ACETAMINOPHEN
     Indication: PROCEDURAL PAIN
     Dosage: 2 AT NIGHT AND 1 DURING DAY.
     Route: 065

REACTIONS (1)
  - Incorrect dose administered [Unknown]
